FAERS Safety Report 7971653-6 (Version None)
Quarter: 2011Q4

REPORT INFORMATION
  Report Type: 
  Country: None (occurrence: None)
  Receive Date: 20111212
  Receipt Date: 20111202
  Transmission Date: 20120403
  Serious: Yes (Other)
  Sender: FDA-Public Use
  Company Number: SE-JNJFOC-20111202788

PATIENT
  Sex: Male

DRUGS (4)
  1. XARELTO [Suspect]
     Indication: ANTICOAGULANT THERAPY
     Route: 048
  2. XARELTO [Suspect]
     Route: 048
  3. XARELTO [Suspect]
     Route: 048
     Dates: start: 20111130
  4. XARELTO [Suspect]
     Indication: HIP ARTHROPLASTY
     Route: 048
     Dates: start: 20111130

REACTIONS (2)
  - LUNG NEOPLASM [None]
  - PULMONARY EMBOLISM [None]
